FAERS Safety Report 4299493-2 (Version None)
Quarter: 2004Q1

REPORT INFORMATION
  Report Type: 
  Country: None (occurrence: None)
  Receive Date: 20040217
  Receipt Date: 20040211
  Transmission Date: 20041129
  Serious: Yes (Hospitalization)
  Sender: FDA-Public Use
  Company Number: BE-JNJFOC-20040202566

PATIENT
  Age: 4 Year
  Sex: Female

DRUGS (1)
  1. PROPULSID [Suspect]
     Indication: ENCEPHALOPATHY
     Dosage: 2.2 MG, 4 IN 1 DAY
     Dates: start: 20030228

REACTIONS (1)
  - ENCEPHALOPATHY [None]
